FAERS Safety Report 24126553 (Version 1)
Quarter: 2024Q3

REPORT INFORMATION
  Report Type: Spontaneous
  Country: TN (occurrence: TN)
  Receive Date: 20240723
  Receipt Date: 20240723
  Transmission Date: 20241016
  Serious: Yes (Other)
  Sender: PFIZER
  Company Number: TN-PFIZER INC-PV202400094693

PATIENT
  Age: 73 Year
  Sex: Female

DRUGS (1)
  1. IBRANCE [Suspect]
     Active Substance: PALBOCICLIB
     Indication: Breast cancer metastatic
     Dosage: 125 MG, CYCLIC, 1 TABLET DAILY FOR 21 DAYS ON AND 7 DAYS OFF

REACTIONS (1)
  - Transaminases increased [Unknown]
